FAERS Safety Report 12915451 (Version 1)
Quarter: 2016Q4

REPORT INFORMATION
  Report Type: Spontaneous
  Country: US (occurrence: US)
  Receive Date: 20161106
  Receipt Date: 20161106
  Transmission Date: 20170207
  Serious: No
  Sender: FDA-Public Use
  Company Number: US-RELYPSA-RLY2016003003

PATIENT
  Age: 55 Year
  Sex: Female

DRUGS (6)
  1. TRICOR [Concomitant]
     Active Substance: FENOFIBRATE
  2. VELTASSA [Suspect]
     Active Substance: PATIROMER
     Indication: HYPERKALAEMIA
     Dosage: 8.4 G, QD
     Route: 048
     Dates: start: 201609, end: 201610
  3. DILTIAZEM. [Concomitant]
     Active Substance: DILTIAZEM
  4. NEXIUM [Concomitant]
     Active Substance: ESOMEPRAZOLE MAGNESIUM
  5. TRADJENTA [Concomitant]
     Active Substance: LINAGLIPTIN
  6. ASPIRIN. [Concomitant]
     Active Substance: ASPIRIN

REACTIONS (1)
  - Diarrhoea [Unknown]

NARRATIVE: CASE EVENT DATE: 201610
